FAERS Safety Report 8582957-0 (Version None)
Quarter: 2012Q3

REPORT INFORMATION
  Report Type: 
  Country: None (occurrence: None)
  Receive Date: 20120809
  Receipt Date: 20120806
  Transmission Date: 20120928
  Serious: Yes (Other)
  Sender: FDA-Public Use
  Company Number: US-PFIZER INC-2012144816

PATIENT
  Sex: Female

DRUGS (1)
  1. CADUET [Suspect]
     Dosage: UNK

REACTIONS (2)
  - CARDIAC DISORDER [None]
  - SURGERY [None]
